FAERS Safety Report 5229537-2 (Version None)
Quarter: 2007Q1

REPORT INFORMATION
  Report Type: 
  Country: None (occurrence: None)
  Receive Date: 20061201
  Receipt Date: 20060925
  Transmission Date: 20070707
  Serious: No
  Sender: FDA-Public Use
  Company Number: 2006PV021940

PATIENT
  Age: 56 Year
  Sex: Female
  Weight: 72.5755 kg

DRUGS (5)
  1. BYETTA [Suspect]
     Indication: DIABETES MELLITUS NON-INSULIN-DEPENDENT
     Dosage: 5 MCG;BID;SC
     Route: 058
     Dates: start: 20060901
  2. GLUCOPHAGE [Concomitant]
  3. AMARYL [Concomitant]
  4. NOVOLOG [Concomitant]
  5. LANTUS [Concomitant]

REACTIONS (3)
  - DRUG INEFFECTIVE FOR UNAPPROVED INDICATION [None]
  - NAUSEA [None]
  - VOMITING [None]
